FAERS Safety Report 8808924 (Version 2)
Quarter: 2012Q4

REPORT INFORMATION
  Report Type: Report from Study
  Country: JP (occurrence: JP)
  Receive Date: 20120926
  Receipt Date: 20121128
  Transmission Date: 20130627
  Serious: Yes (Other)
  Sender: FDA-Public Use
  Company Number: JP-ASTELLAS-2012JP008673

PATIENT
  Age: 81 Year
  Sex: Female
  Weight: 51.5 kg

DRUGS (4)
  1. MIRABEGRON [Suspect]
     Indication: HYPERTONIC BLADDER
     Dosage: 50 mg, UID/QD
     Route: 048
     Dates: start: 20120615, end: 20120628
  2. SYMMETREL [Concomitant]
     Indication: CEREBRAL INFARCTION
     Dosage: 150 mg, Unknown/D
     Route: 048
  3. TAKEPRON [Concomitant]
     Indication: GASTRIC ULCER
     Dosage: 15 mg, Unknown/D
     Route: 048
  4. PLETAAL [Concomitant]
     Indication: CEREBRAL INFARCTION
     Dosage: 200 mg, Unknown/D
     Route: 048

REACTIONS (1)
  - Dysuria [Not Recovered/Not Resolved]
